FAERS Safety Report 21435053 (Version 4)
Quarter: 2023Q1

REPORT INFORMATION
  Report Type: Report from Study
  Country: US (occurrence: US)
  Receive Date: 20221010
  Receipt Date: 20230131
  Transmission Date: 20230417
  Serious: Yes (Other)
  Sender: FDA-Public Use
  Company Number: US-ABBVIE-4147187

PATIENT
  Age: 61 Year
  Sex: Male
  Weight: 95.254 kg

DRUGS (4)
  1. HUMIRA [Suspect]
     Active Substance: ADALIMUMAB
     Indication: Product used for unknown indication
     Dosage: FORM STRENGTH: 40 MILLIGRAM
     Route: 058
  2. HUMIRA [Suspect]
     Active Substance: ADALIMUMAB
  3. AMLODIPINE [Concomitant]
     Active Substance: AMLODIPINE BESYLATE
     Indication: Hypertension
     Dosage: DAILY
     Dates: start: 202205
  4. METOPROLOL [Concomitant]
     Active Substance: METOPROLOL
     Indication: Hypertension
     Dosage: DAILY
     Dates: start: 202209

REACTIONS (6)
  - Knee arthroplasty [Recovered/Resolved]
  - Bronchitis [Recovered/Resolved]
  - Hip arthroplasty [Recovered/Resolved]
  - Knee arthroplasty [Recovered/Resolved]
  - White blood cell count increased [Unknown]
  - Infection [Not Recovered/Not Resolved]

NARRATIVE: CASE EVENT DATE: 20180401
